FAERS Safety Report 4308052-4 (Version None)
Quarter: 2004Q1

REPORT INFORMATION
  Report Type: 
  Country: None (occurrence: None)
  Receive Date: 20040301
  Receipt Date: 20030415
  Transmission Date: 20041129
  Serious: No
  Sender: FDA-Public Use
  Company Number: US-BRISTOL-MYERS SQUIBB COMPANY-12241071

PATIENT
  Age: 76 Year
  Sex: Male
  Weight: 98 kg

DRUGS (6)
  1. GLUCOPHAGE [Suspect]
     Indication: DIABETES MELLITUS NON-INSULIN-DEPENDENT
     Route: 048
  2. ATENOLOL [Concomitant]
  3. LASIX [Concomitant]
  4. PLAVIX [Concomitant]
  5. NORVASC [Concomitant]
  6. PRINIVIL [Concomitant]

REACTIONS (4)
  - ABDOMINAL DISTENSION [None]
  - DIARRHOEA [None]
  - FLATULENCE [None]
  - WEIGHT INCREASED [None]
